FAERS Safety Report 16767169 (Version 2)
Quarter: 2019Q3

REPORT INFORMATION
  Report Type: Spontaneous
  Country: US (occurrence: US)
  Receive Date: 20190903
  Receipt Date: 20190923
  Transmission Date: 20191005
  Serious: No
  Sender: FDA-Public Use
  Company Number: US-PFIZER INC-2019374243

PATIENT
  Age: 81 Year
  Sex: Male
  Weight: 81 kg

DRUGS (2)
  1. ATORVASTATIN CALCIUM. [Suspect]
     Active Substance: ATORVASTATIN CALCIUM
     Indication: BLOOD CHOLESTEROL
     Dosage: 40 MG, 1X/DAY
     Route: 048
     Dates: start: 201901, end: 2019
  2. ATORVASTATIN CALCIUM. [Suspect]
     Active Substance: ATORVASTATIN CALCIUM
     Indication: BLOOD TRIGLYCERIDES

REACTIONS (6)
  - Arthropathy [Recovering/Resolving]
  - Drug ineffective [Unknown]
  - Muscular weakness [Recovering/Resolving]
  - Joint swelling [Unknown]
  - Bone disorder [Recovering/Resolving]
  - Peripheral swelling [Unknown]

NARRATIVE: CASE EVENT DATE: 2019
